FAERS Safety Report 9797073 (Version 1)
Quarter: 2014Q1

REPORT INFORMATION
  Report Type: Spontaneous
  Country: MX (occurrence: MX)
  Receive Date: 20140105
  Receipt Date: 20140105
  Transmission Date: 20141002
  Serious: Yes (Other)
  Sender: FDA-Public Use
  Company Number: MX-PFIZER INC-2014001913

PATIENT
  Age: 62 Year
  Sex: Female

DRUGS (2)
  1. CELEBREX [Suspect]
     Dosage: 200 MG, UNK
     Route: 048
     Dates: start: 20131228
  2. LOSARTAN [Concomitant]
     Indication: HYPERTENSION

REACTIONS (3)
  - Hypertensive crisis [Unknown]
  - Chest discomfort [Unknown]
  - Pharyngeal hypoaesthesia [Unknown]
